FAERS Safety Report 5087511-3 (Version None)
Quarter: 2006Q3

REPORT INFORMATION
  Report Type: 
  Country: None (occurrence: None)
  Receive Date: 20060824
  Receipt Date: 20050728
  Transmission Date: 20061208
  Serious: Yes (Death)
  Sender: FDA-Public Use
  Company Number: US-GLAXOSMITHKLINE-A0568344A

PATIENT
  Age: 39 Year
  Sex: Male
  Weight: 86.4 kg

DRUGS (3)
  1. WELLBUTRIN [Suspect]
     Indication: ANXIETY
     Dosage: 150MG TWICE PER DAY
     Route: 048
     Dates: start: 20020516, end: 20020525
  2. AMBIEN [Concomitant]
  3. ALCOHOL [Concomitant]
     Route: 048
     Dates: start: 20020525, end: 20020525

REACTIONS (4)
  - AGGRESSION [None]
  - COMPLETED SUICIDE [None]
  - EMOTIONAL DISTRESS [None]
  - POISONING [None]
